FAERS Safety Report 5314423-X (Version None)
Quarter: 2007Q2

REPORT INFORMATION
  Report Type: 
  Country: None (occurrence: None)
  Receive Date: 20070502
  Receipt Date: 20070426
  Transmission Date: 20071010
  Serious: Yes (Life-Threatening, Hospitalization, Other)
  Sender: FDA-Public Use
  Company Number: FR-NOVOPROD-251641

PATIENT
  Age: 37 Year
  Sex: Female

DRUGS (7)
  1. NOVOSEVEN [Suspect]
     Indication: HAEMORRHAGE
     Route: 042
     Dates: start: 20051119, end: 20051119
  2. ADRENALIN                          /00003901/ [Concomitant]
     Dosage: 9 ML, UNK
     Dates: start: 20051123
  3. FRESH FROZEN PLASMA [Concomitant]
     Dosage: 10 U, UNK
  4. PLATELETS [Concomitant]
  5. RED BLOOD CELLS [Concomitant]
     Dosage: 4 U, UNK
     Dates: start: 20051123
  6. LEVOPHED [Concomitant]
  7. DOBUTAMINE [Concomitant]

REACTIONS (4)
  - ACUTE PULMONARY OEDEMA [None]
  - CARDIAC ARREST [None]
  - PERIPHERAL ISCHAEMIA [None]
  - PULMONARY EMBOLISM [None]
